FAERS Safety Report 10256782 (Version 1)
Quarter: 2014Q2

REPORT INFORMATION
  Report Type: Spontaneous
  Country: AU (occurrence: AU)
  Receive Date: 20140624
  Receipt Date: 20140624
  Transmission Date: 20141212
  Serious: Yes (Hospitalization)
  Sender: FDA-Public Use
  Company Number: AU-AMGEN-AUSSP2014046341

PATIENT
  Sex: Female

DRUGS (3)
  1. FILGRASTIM [Suspect]
     Indication: PRODUCT USED FOR UNKNOWN INDICATION
     Dosage: UNK
     Route: 058
     Dates: start: 20140219, end: 20140228
  2. LORATADINE [Concomitant]
     Dosage: UNK
  3. LORAZEPAM [Concomitant]
     Dosage: UNK

REACTIONS (2)
  - Myalgia [Unknown]
  - Muscle spasms [Unknown]
